FAERS Safety Report 8220822-9 (Version None)
Quarter: 2012Q1

REPORT INFORMATION
  Report Type: 
  Country: None (occurrence: None)
  Receive Date: 20120307
  Receipt Date: 20100311
  Transmission Date: 20120608
  Serious: No
  Sender: FDA-Public Use
  Company Number: PHHY2010US15736

PATIENT
  Age: 57 Year
  Sex: Male

DRUGS (4)
  1. AFINITOR [Suspect]
  2. CLINDAMYCIN [Concomitant]
  3. HYDROCODONE [Concomitant]
  4. LIPITOR [Concomitant]

REACTIONS (4)
  - RASH [None]
  - ASTHENIA [None]
  - PAIN IN EXTREMITY [None]
  - MOUTH ULCERATION [None]
